FAERS Safety Report 5755058-4 (Version None)
Quarter: 2008Q2

REPORT INFORMATION
  Report Type: 
  Country: None (occurrence: None)
  Receive Date: 20080528
  Receipt Date: 20080528
  Transmission Date: 20081010
  Serious: No
  Sender: FDA-Public Use
  Company Number: None

PATIENT

DRUGS (1)
  1. SINGULAIR [Suspect]

REACTIONS (10)
  - ABDOMINAL PAIN [None]
  - CATATONIA [None]
  - CRYING [None]
  - DEPRESSED MOOD [None]
  - FATIGUE [None]
  - FEELING OF DESPAIR [None]
  - MOOD ALTERED [None]
  - SLEEP DISORDER [None]
  - SOCIAL AVOIDANT BEHAVIOUR [None]
  - SOMNOLENCE [None]
